FAERS Safety Report 8578529-4 (Version None)
Quarter: 2012Q3

REPORT INFORMATION
  Report Type: 
  Country: None (occurrence: None)
  Receive Date: 20120731
  Receipt Date: 20120731
  Transmission Date: 20120928
  Serious: No
  Sender: FDA-Public Use
  Company Number: None

PATIENT
  Age: 61 Year
  Sex: Female
  Weight: 53.2 kg

DRUGS (7)
  1. FLUOROURACIL [Concomitant]
  2. LORAZEPAM [Concomitant]
  3. PROCHLORPERAZINE [Concomitant]
  4. OXALIPLATIN [Suspect]
     Indication: COLON CANCER METASTATIC
     Dosage: 100 MG IV
     Route: 042
     Dates: start: 20120531
  5. OXALIPLATIN [Suspect]
     Indication: COLON CANCER METASTATIC
     Dosage: 100 MG IV
     Route: 042
     Dates: start: 20120614
  6. LIDOCAINE-PRILOCAINE [Concomitant]
  7. TRIAMCINOLONE ACETONIDE [Concomitant]

REACTIONS (4)
  - FLUSHING [None]
  - PRURITUS [None]
  - FEELING ABNORMAL [None]
  - CHEST PAIN [None]
